FAERS Safety Report 8035540 (Version 10)
Quarter: 2012Q4

REPORT INFORMATION
  Report Type: 
  Country: US (occurrence: US)
  Receive Date: 20110714
  Receipt Date: 20121011
  Transmission Date: 20130627
  Serious: Yes (Other)
  Sender: FDA-Public Use
  Company Number: US-BAYER-2011-060318

PATIENT
  Age: 69 Year
  Sex: Male

DRUGS (16)
  1. MAGNEVIST [Suspect]
     Indication: NUCLEAR MAGNETIC RESONANCE IMAGING SPINAL
     Dosage: UNK
     Route: 042
     Dates: start: 20050222, end: 20050222
  2. GADOLINIUM [Suspect]
     Indication: ANGIOGRAM
     Dosage: UNK
     Dates: start: 20040413, end: 20040413
  3. GADOLINIUM [Suspect]
     Indication: NUCLEAR MAGNETIC RESONANCE IMAGING ABDOMINAL
     Dosage: UNK
     Dates: start: 20040421, end: 20040421
  4. EPOGEN [Concomitant]
     Indication: RED BLOOD CELL ABNORMALITY
     Dosage: UNK
     Dates: start: 2001
  5. NEPHROVITE [VIT C,VIT H,B5,B12,B9,B3,B6,B2,B1 HCL] [Concomitant]
     Indication: VITAMIN SUPPLEMENTATION
     Dosage: UNK
     Dates: start: 2001
  6. OXYCONTIN [Concomitant]
     Indication: PAIN
     Dosage: UNK
     Dates: start: 2001
  7. ISOSORBIDE [Concomitant]
     Indication: HYPERTENSION
     Dosage: UNK
     Dates: start: 2001
  8. MINOXIDIL [Concomitant]
     Indication: HYPERTENSION
     Dosage: UNK
     Dates: start: 2001
  9. CRESTOR [Concomitant]
     Indication: BLOOD CHOLESTEROL INCREASED
     Dosage: UNK
     Dates: start: 2001
  10. PHOSLO [Concomitant]
     Indication: BLOOD PHOSPHORUS INCREASED
  11. ALLOPURINOL [Concomitant]
     Indication: GOUT
  12. SENSIPAR [Concomitant]
     Indication: BLOOD CALCIUM INCREASED
  13. ZEMPLAR [Concomitant]
  14. FOLIC ACID [Concomitant]
     Dosage: 1 mg, QD
     Route: 048
  15. DOXAZOSIN [Concomitant]
     Dosage: 8 mg, QD
     Route: 048
  16. CONTRAST MEDIA [Concomitant]
     Indication: ANGIOGRAM
     Dosage: UNK
     Dates: start: 20110927, end: 20110927

REACTIONS (24)
  - Nephrogenic systemic fibrosis [Not Recovered/Not Resolved]
  - Injury [Not Recovered/Not Resolved]
  - Skin induration [Not Recovered/Not Resolved]
  - Skin discolouration [Not Recovered/Not Resolved]
  - Pain in extremity [Not Recovered/Not Resolved]
  - Muscular weakness [Not Recovered/Not Resolved]
  - Abasia [Not Recovered/Not Resolved]
  - Hand deformity [Not Recovered/Not Resolved]
  - Muscle tightness [Not Recovered/Not Resolved]
  - Mobility decreased [Not Recovered/Not Resolved]
  - Nodule [Not Recovered/Not Resolved]
  - Dry skin [Not Recovered/Not Resolved]
  - Skin exfoliation [Not Recovered/Not Resolved]
  - Oedema peripheral [Not Recovered/Not Resolved]
  - Skin plaque [Not Recovered/Not Resolved]
  - Skin mass [Not Recovered/Not Resolved]
  - Skin fissures [Not Recovered/Not Resolved]
  - Skin hyperpigmentation [Not Recovered/Not Resolved]
  - Osteoarthritis [None]
  - Renal failure acute [None]
  - Fall [None]
  - Head injury [None]
  - Loss of consciousness [None]
  - Amnesia [None]
